FAERS Safety Report 7280272-9 (Version None)
Quarter: 2011Q1

REPORT INFORMATION
  Report Type: 
  Country: None (occurrence: None)
  Receive Date: 20110208
  Receipt Date: 20110202
  Transmission Date: 20110831
  Serious: Yes (Hospitalization)
  Sender: FDA-Public Use
  Company Number: US-SANOFI-AVENTIS-2011SA007042

PATIENT
  Age: 69 Year
  Sex: Male

DRUGS (13)
  1. EMEND [Concomitant]
     Indication: VOMITING
     Dosage: TAKE AM DAY 2, 3 POST CHEMOTHERAPY
     Route: 048
  2. DEXAMETHASONE [Concomitant]
     Indication: VOMITING
     Dosage: TAKE DAYS 2-4 POST CHEMO
     Route: 048
  3. DEXAMETHASONE [Concomitant]
     Indication: NAUSEA
     Dosage: TAKE DAYS 2-4 POST CHEMO
     Route: 048
  4. FENTANYL [Concomitant]
     Indication: PAIN
     Dosage: EVERY 3 DAYS
  5. CISPLATIN [Suspect]
     Dates: start: 20110126, end: 20110126
  6. EMEND [Concomitant]
     Indication: NAUSEA
     Dosage: TAKE AM DAY 2, 3 POST CHEMOTHERAPY
     Route: 048
  7. CARVEDILOL [Concomitant]
     Indication: HYPERTENSION
     Route: 048
  8. DILAUDID [Concomitant]
     Indication: PAIN
     Route: 048
  9. ENALAPRIL MALEATE [Concomitant]
     Indication: HYPERTENSION
     Route: 048
  10. DOCETAXEL [Suspect]
     Route: 041
     Dates: start: 20110126, end: 20110126
  11. NYSTATIN [Concomitant]
     Indication: PROPHYLAXIS
     Dosage: DOSE:1 TEASPOON(S)
     Route: 048
  12. XALATAN [Concomitant]
  13. BLINDED THERAPY [Suspect]
     Route: 048
     Dates: start: 20110126

REACTIONS (8)
  - FATIGUE [None]
  - NEUTROPENIA [None]
  - LEUKOPENIA [None]
  - HYPONATRAEMIA [None]
  - HYPERKALAEMIA [None]
  - DECREASED APPETITE [None]
  - HYPOTENSION [None]
  - DEHYDRATION [None]
